APPROVED DRUG PRODUCT: TRAZODONE HYDROCHLORIDE
Active Ingredient: TRAZODONE HYDROCHLORIDE
Strength: 150MG
Dosage Form/Route: TABLET;ORAL
Application: A074357 | Product #001
Applicant: TEVA PHARMACEUTICALS USA INC
Approved: Apr 30, 1997 | RLD: No | RS: No | Type: DISCN